FAERS Safety Report 10162157 (Version 4)
Quarter: 2023Q4

REPORT INFORMATION
  Report Type: Report from Study
  Country: US (occurrence: US)
  Receive Date: 20140509
  Receipt Date: 20231107
  Transmission Date: 20240109
  Serious: Yes (Death, Hospitalization)
  Sender: FDA-Public Use
  Company Number: US-SA-2014SA050696

PATIENT
  Age: 40 Year
  Sex: Female

DRUGS (7)
  1. AFLIBERCEPT [Suspect]
     Active Substance: AFLIBERCEPT
     Indication: Colorectal cancer metastatic
     Dosage: 234 MG,QCY
     Route: 041
     Dates: start: 20140319, end: 20140319
  2. FLUOROURACIL [Suspect]
     Active Substance: FLUOROURACIL
     Indication: Colorectal cancer metastatic
     Dosage: 660 MG,QCY
     Route: 040
     Dates: start: 20140319, end: 20140319
  3. FLUOROURACIL [Suspect]
     Active Substance: FLUOROURACIL
     Dosage: 3960 MG,QCY
     Route: 041
     Dates: start: 20140319, end: 20140319
  4. IRINOTECAN [Suspect]
     Active Substance: IRINOTECAN
     Indication: Colorectal cancer metastatic
     Dosage: 300 MG,QCY
     Route: 041
     Dates: start: 20140319, end: 20140319
  5. LEUCOVORIN [Suspect]
     Active Substance: LEUCOVORIN\LEUCOVORIN CALCIUM
     Indication: Colorectal cancer metastatic
     Dosage: 660 MG,QCY
     Route: 041
     Dates: start: 20140319, end: 20140319
  6. TYLENOL [Concomitant]
     Active Substance: ACETAMINOPHEN
     Indication: Therapeutic procedure
     Dosage: UNK
     Dates: start: 20140211
  7. CALCIUM CHLORIDE\POTASSIUM CHLORIDE\SODIUM CHLORIDE [Concomitant]
     Active Substance: CALCIUM CHLORIDE\POTASSIUM CHLORIDE\SODIUM CHLORIDE
     Dosage: UNK
     Dates: start: 20131105

REACTIONS (2)
  - Gastrointestinal perforation [Fatal]
  - Pneumonia [Unknown]

NARRATIVE: CASE EVENT DATE: 20140325
